FAERS Safety Report 9657871 (Version 3)
Quarter: 2014Q2

REPORT INFORMATION
  Report Type: Report from Study
  Country: JP (occurrence: JP)
  Receive Date: 20131030
  Receipt Date: 20140521
  Transmission Date: 20141212
  Serious: Yes (Death, Life-Threatening, Hospitalization)
  Sender: FDA-Public Use
  Company Number: JP-SA-2013SA109781

PATIENT
  Age: 71 Year
  Sex: Female
  Weight: 43.9 kg

DRUGS (11)
  1. THYMOGLOBULINE [Suspect]
     Indication: APLASTIC ANAEMIA
     Route: 042
     Dates: start: 20130729, end: 20130802
  2. SOLU-MEDROL [Suspect]
     Indication: APLASTIC ANAEMIA
     Route: 065
     Dates: start: 20130729, end: 20130802
  3. PREDONINE [Suspect]
     Indication: APLASTIC ANAEMIA
     Route: 065
     Dates: start: 20130803, end: 20130828
  4. NEORAL [Concomitant]
     Indication: APLASTIC ANAEMIA
     Dates: start: 20130718, end: 20130827
  5. ACETAMINOPHEN [Concomitant]
     Indication: PROPHYLAXIS
     Dates: start: 20130729, end: 20130802
  6. POLARAMINE [Concomitant]
     Indication: PROPHYLAXIS
     Dates: start: 20130729, end: 20130802
  7. CRAVIT [Concomitant]
     Indication: PROPHYLAXIS
     Dates: start: 20130723, end: 20130808
  8. ITRIZOLE [Concomitant]
     Indication: PROPHYLAXIS
     Dates: start: 20130723, end: 20130822
  9. ACINON [Concomitant]
     Indication: PROPHYLAXIS
     Dates: start: 20130718
  10. HUMALOG [Concomitant]
     Indication: APLASTIC ANAEMIA
     Dosage: MIX 50
     Dates: start: 20130729, end: 20130819
  11. NEUTROGIN [Concomitant]
     Indication: APLASTIC ANAEMIA
     Dates: start: 20130716, end: 20130825

REACTIONS (6)
  - Liver disorder [Fatal]
  - Renal disorder [Fatal]
  - Hyperglycaemia [Not Recovered/Not Resolved]
  - Cytomegalovirus viraemia [Fatal]
  - White blood cell count decreased [Recovered/Resolved]
  - Infection [Fatal]
